FAERS Safety Report 23201704 (Version 1)
Quarter: 2023Q4

REPORT INFORMATION
  Report Type: Spontaneous
  Country: US (occurrence: None)
  Receive Date: 20231118
  Receipt Date: 20231118
  Transmission Date: 20240110
  Serious: Yes (Life-Threatening, Hospitalization, Disabling)
  Sender: FDA-Public Use
  Company Number: None

PATIENT
  Age: 36 Year
  Sex: Female
  Weight: 81 kg

DRUGS (2)
  1. EXPAREL [Suspect]
     Active Substance: BUPIVACAINE
     Dates: start: 20220830, end: 20220830
  2. VITAMINS [Concomitant]
     Active Substance: VITAMINS

REACTIONS (8)
  - Spinal cord infarction [None]
  - Anaesthetic complication neurological [None]
  - Iatrogenic injury [None]
  - Internal haemorrhage [None]
  - Femoral nerve injury [None]
  - Exposure during pregnancy [None]
  - Maternal drugs affecting foetus [None]
  - Paraplegia [None]

NARRATIVE: CASE EVENT DATE: 20220830
